FAERS Safety Report 10541310 (Version 1)
Quarter: 2014Q4

REPORT INFORMATION
  Report Type: Spontaneous
  Country: US (occurrence: None)
  Receive Date: 20141010
  Receipt Date: 20141010
  Transmission Date: 20150529
  Serious: No
  Sender: FDA-Public Use
  Company Number: 163-POMAL-14061829

PATIENT
  Age: 78 Year
  Sex: Male
  Weight: 68.9 kg

DRUGS (9)
  1. POMALYST [Suspect]
     Active Substance: POMALIDOMIDE
     Indication: PLASMA CELL MYELOMA
     Dosage: 3 MG, 21 IN 28 D, PO
     Route: 048
     Dates: start: 20140422
  2. NEURONTIN (GABAPENTIN) (UNKNOWN) [Concomitant]
  3. OXYCODONE-ACETAMINOPHEN (OXYCOCET) (UNKNOWN) [Concomitant]
  4. COQ10 (UBIDECARENONE) (UNKNOWN) [Concomitant]
  5. FISH OIL (FISH OIL) (UNKNOWN) [Concomitant]
  6. SENNA (SENNA) (UNKNOWN) [Concomitant]
  7. MULTIVITAMINS (MULTIVITAMINS) (UNKNOWN) [Concomitant]
  8. CALCIUM CARBONATE (CALCIUM CARBONATE) (UNKNOWN) (CALCIUM CARBONATE) [Concomitant]
     Active Substance: CALCIUM CARBONATE
  9. COLACE [Concomitant]
     Active Substance: DOCUSATE SODIUM

REACTIONS (1)
  - Bronchitis [None]

NARRATIVE: CASE EVENT DATE: 2014
